FAERS Safety Report 8774191 (Version 2)
Quarter: 2013Q3

REPORT INFORMATION
  Report Type: Spontaneous
  Country: US (occurrence: US)
  Receive Date: 20120907
  Receipt Date: 20130703
  Transmission Date: 20140515
  Serious: No
  Sender: FDA-Public Use
  Company Number: US-B.I. PHARMACEUTICALS,INC./RIDGEFIELD-2012-BP-21477BP

PATIENT
  Age: 67 Year
  Sex: Female

DRUGS (7)
  1. PRADAXA [Suspect]
     Indication: ATRIAL FIBRILLATION
     Dosage: 300 MG
     Route: 048
     Dates: start: 20120225
  2. LOVASTATIN [Concomitant]
     Indication: BLOOD CHOLESTEROL INCREASED
     Dosage: 10 MG
     Route: 048
  3. LOVASTATIN [Concomitant]
     Dosage: 20 MG
     Route: 048
     Dates: start: 2007
  4. TEGRETOL [Concomitant]
     Indication: EPILEPSY
     Dosage: 100 MG
     Route: 048
     Dates: start: 2006
  5. CAPTOPRIL [Concomitant]
     Indication: HYPERTENSION
     Dosage: 75 MG
     Route: 048
  6. SOTALOL [Concomitant]
     Indication: HEART RATE IRREGULAR
     Dosage: 320 MG
     Route: 048
     Dates: start: 201102
  7. EXFORGE [Concomitant]
     Indication: HYPERTENSION
     Dosage: STRENGTH: 10MG/160MG; DAILY DOSE: 10MG/160MG
     Route: 048
     Dates: start: 201210

REACTIONS (3)
  - Fungal infection [Not Recovered/Not Resolved]
  - Rash erythematous [Not Recovered/Not Resolved]
  - Rash [Not Recovered/Not Resolved]
